FAERS Safety Report 8941533 (Version 1)
Quarter: 2012Q4

REPORT INFORMATION
  Report Type: 
  Country: CH (occurrence: CH)
  Receive Date: 20121203
  Receipt Date: 20121203
  Transmission Date: 20130627
  Serious: Yes (Other)
  Sender: FDA-Public Use
  Company Number: CH-ASTRAZENECA-2012SE89163

PATIENT
  Age: 36 Year
  Sex: Female

DRUGS (3)
  1. ATACAND [Suspect]
     Route: 048
     Dates: start: 20121024, end: 20121112
  2. ATACAND PLUS [Suspect]
     Route: 048
     Dates: start: 20121017, end: 20121024
  3. LASIX [Suspect]
     Route: 065
     Dates: start: 20120928, end: 20120928

REACTIONS (2)
  - Exposure during pregnancy [Unknown]
  - Oligohydramnios [Not Recovered/Not Resolved]
